FAERS Safety Report 14603296 (Version 1)
Quarter: 2018Q1

REPORT INFORMATION
  Report Type: Spontaneous
  Country: US (occurrence: US)
  Receive Date: 20180306
  Receipt Date: 20180306
  Transmission Date: 20180509
  Serious: Yes (Hospitalization, Other)
  Sender: FDA-Public Use
  Company Number: US-AUROBINDO-AUR-APL-2018-009810

PATIENT

DRUGS (1)
  1. METHADONE [Suspect]
     Active Substance: METHADONE HYDROCHLORIDE
     Indication: PRODUCT USED FOR UNKNOWN INDICATION

REACTIONS (9)
  - Drug abuse [Unknown]
  - Noninfective gingivitis [Unknown]
  - Paraesthesia [Unknown]
  - Depressed level of consciousness [Unknown]
  - Somnolence [Unknown]
  - Compartment syndrome [Unknown]
  - Sciatic nerve neuropathy [Unknown]
  - Asthenia [Unknown]
  - Musculoskeletal pain [Unknown]
